FAERS Safety Report 7434826-7 (Version None)
Quarter: 2011Q2

REPORT INFORMATION
  Report Type: 
  Country: None (occurrence: None)
  Receive Date: 20110425
  Receipt Date: 20110415
  Transmission Date: 20111010
  Serious: No
  Sender: FDA-Public Use
  Company Number: JP-ASTRAZENECA-2011SE18876

PATIENT
  Age: 5907 Day
  Sex: Male
  Weight: 50 kg

DRUGS (5)
  1. SYMBICORT [Suspect]
     Dosage: 60, 2 DOSAGE FORM, TWO TIMES A DAY.
     Route: 055
     Dates: start: 20110331
  2. SYMBICORT [Suspect]
     Indication: ASTHMA
     Dosage: 60, 3 DOSAGE FORM, TWO TIMES A DAY.
     Route: 055
     Dates: start: 20110328, end: 20110330
  3. SINGULAIR [Concomitant]
     Indication: ASTHMA
     Route: 048
     Dates: start: 20030109, end: 20090207
  4. SINGULAIR [Concomitant]
     Route: 048
     Dates: start: 20090208
  5. EPHEDRA TEAS [Concomitant]
     Indication: ASTHMA
     Route: 048
     Dates: start: 20101104

REACTIONS (1)
  - BLOOD CORTISOL DECREASED [None]
